FAERS Safety Report 4331327-X (Version None)
Quarter: 2004Q1

REPORT INFORMATION
  Report Type: 
  Country: None (occurrence: None)
  Receive Date: 20040331
  Receipt Date: 20040322
  Transmission Date: 20041129
  Serious: Yes (Hospitalization)
  Sender: FDA-Public Use
  Company Number: 2004-01-1481

PATIENT
  Age: 24 Year
  Sex: Male
  Weight: 71 kg

DRUGS (11)
  1. QVAR 40 [Suspect]
     Indication: ASTHMA
     Dosage: 800 MCG QD ORAL AER INH
     Route: 055
     Dates: start: 20031111, end: 20031127
  2. FLUTIDE (FLUTICASONE PROPIONATE) ORAL AEROSOL [Suspect]
     Indication: ASTHMA
     Dosage: ORAL AER INH
     Route: 055
     Dates: end: 20030101
  3. FLUTIDE (FLUTICASONE PROPIONATE) ORAL AEROSOL [Suspect]
     Indication: ASTHMA
     Dosage: ORAL AER INH
     Route: 055
     Dates: start: 20031127
  4. PREDONINE [Concomitant]
  5. GASTER [Concomitant]
  6. SELBEX [Concomitant]
  7. THEOPHYLLINE [Concomitant]
  8. THEO-DUR [Concomitant]
  9. MONTELUKAST SODIUM [Concomitant]
  10. SEREVENT [Concomitant]
  11. UNSPECIFIED THERAPEUTIC AGENT [Concomitant]

REACTIONS (5)
  - ALVEOLITIS ALLERGIC [None]
  - ERYTHEMA [None]
  - NASOPHARYNGITIS [None]
  - PNEUMONIA BACTERIAL [None]
  - PYREXIA [None]
